FAERS Safety Report 17743048 (Version 1)
Quarter: 2020Q2

REPORT INFORMATION
  Report Type: Spontaneous
  Country: ES (occurrence: ES)
  Receive Date: 20200504
  Receipt Date: 20200504
  Transmission Date: 20200714
  Serious: Yes (Other)
  Sender: FDA-Public Use
  Company Number: ES-MYLANLABS-2020M1043225

PATIENT
  Age: 52 Year
  Sex: Male

DRUGS (7)
  1. MOXIFLOXACIN. [Suspect]
     Active Substance: MOXIFLOXACIN
     Indication: POSTOPERATIVE CARE
     Dosage: UNK (0.1ML OF 5MG/ML)
     Route: 065
     Dates: start: 2012
  2. DICLOFENAC SODIUM. [Suspect]
     Active Substance: DICLOFENAC SODIUM
     Indication: POSTOPERATIVE CARE
     Dosage: 1 DOSAGE FORM, Q8H (1 MG/ML, TID)
     Route: 065
     Dates: start: 2012
  3. SODIUM HYALURONATE [Concomitant]
     Active Substance: HYALURONATE SODIUM
     Indication: INTRAOPERATIVE CARE
     Dosage: 10 MILLIGRAM PER MILLILITRE
     Route: 065
  4. MOXIFLOXACIN. [Suspect]
     Active Substance: MOXIFLOXACIN
     Indication: POSTOPERATIVE CARE
     Dosage: 1 DOSAGE FORM, Q6H (5 MG/ML, QID)
     Route: 065
     Dates: start: 2012
  5. PREDNISOLONE. [Suspect]
     Active Substance: PREDNISOLONE
     Dosage: 1 DOSAGE FORM, Q4H (10 MG/ML, Q4H)
     Route: 065
     Dates: start: 2012
  6. MITOMYCIN C [Suspect]
     Active Substance: MITOMYCIN
     Indication: INTRAOPERATIVE CARE
     Dosage: 0.2 MILLIGRAM PER MILLILITRE
     Route: 065
  7. PREDNISOLONE. [Suspect]
     Active Substance: PREDNISOLONE
     Indication: POSTOPERATIVE CARE
     Dosage: 1 DOSAGE FORM, QD  (10 MG/ML, WEEKLY)
     Route: 065

REACTIONS (1)
  - Iris hypopigmentation [Recovering/Resolving]
